FAERS Safety Report 8280938-8 (Version None)
Quarter: 2012Q2

REPORT INFORMATION
  Report Type: 
  Country: None (occurrence: None)
  Receive Date: 20120412
  Receipt Date: 20120402
  Transmission Date: 20120825
  Serious: Yes (Hospitalization)
  Sender: FDA-Public Use
  Company Number: US-ABBOTT-12P-163-0921166-00

PATIENT
  Sex: Female

DRUGS (5)
  1. MERCAPTOPURINE [Concomitant]
     Indication: CROHN'S DISEASE
     Dates: start: 20040101
  2. HUMIRA [Suspect]
     Indication: CROHN'S DISEASE
     Route: 058
     Dates: start: 20080724, end: 20080724
  3. HUMIRA [Suspect]
     Route: 058
     Dates: end: 20090518
  4. ASACOL [Concomitant]
     Indication: CROHN'S DISEASE
     Dates: start: 20020101
  5. HUMIRA [Suspect]
     Route: 058

REACTIONS (2)
  - CROHN'S DISEASE [None]
  - FOOD POISONING [None]
